FAERS Safety Report 15466701 (Version 1)
Quarter: 2018Q4

REPORT INFORMATION
  Report Type: Spontaneous
  Country: IE (occurrence: IE)
  Receive Date: 20181005
  Receipt Date: 20181005
  Transmission Date: 20190204
  Serious: Yes (Death, Hospitalization)
  Sender: FDA-Public Use
  Company Number: IE-BAXTER-2018BAX024638

PATIENT
  Age: 75 Year
  Sex: Female

DRUGS (13)
  1. SODIUM CHLORIDE 0.9% W/V INTRAVENOUS INFUSION BP [Suspect]
     Active Substance: SODIUM CHLORIDE
     Indication: SHORT-BOWEL SYNDROME
     Dosage: DAILY
     Route: 065
     Dates: start: 20180706, end: 20180831
  2. GLUCOSE [Suspect]
     Active Substance: DEXTROSE
     Indication: SHORT-BOWEL SYNDROME
     Dosage: DAILY
     Route: 065
     Dates: start: 20180706, end: 20180831
  3. ADDAMEL N [Suspect]
     Active Substance: CHROMIC CHLORIDE\CUPROUS CHLORIDE\FERRIC CHLORIDE\MANGANESE CHLORIDE\POTASSIUM IODIDE\SODIUM FLUORIDE\SODIUM MOLYBDATE DIHYDRATE\SODIUM SELENITE\ZINC CHLORIDE
     Indication: SHORT-BOWEL SYNDROME
     Dosage: DAILY
     Route: 065
     Dates: start: 20180706, end: 20180831
  4. MAGNESIUM SULFATE. [Suspect]
     Active Substance: MAGNESIUM SULFATE
     Indication: SHORT-BOWEL SYNDROME
     Dosage: DAILY
     Route: 065
     Dates: start: 20180706, end: 20180831
  5. SMOFLIPID [Suspect]
     Active Substance: FISH OIL\MEDIUM-CHAIN TRIGLYCERIDES\OLIVE OIL\SOYBEAN OIL
     Indication: SHORT-BOWEL SYNDROME
     Dosage: DAILY
     Route: 065
     Dates: start: 20180706, end: 20180831
  6. POTASSIUM CHLORIDE. [Suspect]
     Active Substance: POTASSIUM CHLORIDE
     Indication: SHORT-BOWEL SYNDROME
     Dosage: DAILY
     Route: 065
     Dates: start: 20180706, end: 20180831
  7. WATER FOR INJECTION [Suspect]
     Active Substance: WATER
     Indication: SHORT-BOWEL SYNDROME
     Dosage: DAILY
     Route: 065
     Dates: start: 20180706, end: 20180831
  8. AMINOVEN [Suspect]
     Active Substance: AMINO ACIDS
     Dosage: UNKNOWN
     Route: 042
  9. SODIUM GLYCEROPHOSPHATE [Suspect]
     Active Substance: SODIUM GLYCEROPHOSPHATE
     Indication: SHORT-BOWEL SYNDROME
     Dosage: DAILY
     Route: 065
     Dates: start: 20180706, end: 20180831
  10. VITINTRA ADULT [Suspect]
     Active Substance: ERGOCALCIFEROL\PHYTONADIONE\TOCOPHEROL\VITAMIN A PALMITATE
     Indication: SHORT-BOWEL SYNDROME
     Dosage: DAILY
     Route: 065
     Dates: start: 20180706, end: 20180831
  11. AMINOVEN [Suspect]
     Active Substance: AMINO ACIDS
     Indication: PRODUCT USED FOR UNKNOWN INDICATION
     Dosage: UNKNOWN
     Route: 042
  12. AMINOVEN [Suspect]
     Active Substance: AMINO ACIDS
     Indication: SHORT-BOWEL SYNDROME
     Dosage: DAILY
     Route: 065
     Dates: start: 20180706, end: 20180831
  13. SOLUVIT N [Suspect]
     Active Substance: VITAMINS
     Indication: SHORT-BOWEL SYNDROME
     Dosage: DAILY
     Route: 065
     Dates: start: 20180706, end: 20180831

REACTIONS (1)
  - Blood test abnormal [Fatal]

NARRATIVE: CASE EVENT DATE: 20180908
